FAERS Safety Report 25189560 (Version 1)
Quarter: 2025Q2

REPORT INFORMATION
  Report Type: Spontaneous
  Country: CN (occurrence: CN)
  Receive Date: 20250411
  Receipt Date: 20250411
  Transmission Date: 20250717
  Serious: Yes (Hospitalization)
  Sender: SANDOZ
  Company Number: CN-SANDOZ-SDZ2025CN022285

PATIENT
  Age: 71 Year
  Sex: Female

DRUGS (2)
  1. VORICONAZOLE [Suspect]
     Active Substance: VORICONAZOLE
     Indication: Protein total abnormal
     Dosage: 200 MG, BID
     Route: 048
     Dates: start: 20250225, end: 20250227
  2. VORICONAZOLE [Suspect]
     Active Substance: VORICONAZOLE
     Indication: Blood albumin abnormal
     Dosage: 0.2 G, Q12H
     Route: 048
     Dates: start: 20250227

REACTIONS (3)
  - Dizziness [Recovering/Resolving]
  - Vision blurred [Recovering/Resolving]
  - Product use in unapproved indication [Unknown]

NARRATIVE: CASE EVENT DATE: 20250225
